FAERS Safety Report 15047918 (Version 3)
Quarter: 2018Q3

REPORT INFORMATION
  Report Type: Report from Study
  Country: None (occurrence: CA)
  Receive Date: 20180621
  Receipt Date: 20180926
  Transmission Date: 20181010
  Serious: Yes (Congenital Anomaly)
  Sender: FDA-Public Use
  Company Number: CA-ABBVIE-18K-028-2391533-00

PATIENT

DRUGS (1)
  1. HUMIRA [Suspect]
     Active Substance: ADALIMUMAB
     Indication: MATERNAL EXPOSURE TIMING UNSPECIFIED
     Route: 064

REACTIONS (4)
  - Limb malformation [Not Recovered/Not Resolved]
  - Cleft lip [Not Recovered/Not Resolved]
  - Foetal exposure during pregnancy [Unknown]
  - Cleft palate [Not Recovered/Not Resolved]
